FAERS Safety Report 9248995 (Version 1)
Quarter: 2013Q2

REPORT INFORMATION
  Report Type: Spontaneous
  Country: US (occurrence: None)
  Receive Date: 20130419
  Receipt Date: 20130419
  Transmission Date: 20140414
  Serious: Yes (Life-Threatening)
  Sender: FDA-Public Use
  Company Number: None

PATIENT
  Age: 29 Year
  Sex: Female
  Weight: 54 kg

DRUGS (11)
  1. ADO-TRASTUZUMAB EMTANSINE [Suspect]
     Indication: BREAST CANCER METASTATIC
     Dates: start: 20130405
  2. ALBUTEROL INHALER [Concomitant]
  3. HYDROMORPHONE [Concomitant]
  4. IBUPROFEN [Concomitant]
  5. LEVOTHYROXINE [Concomitant]
  6. LORAZEPAM [Concomitant]
  7. MEGESTROL [Concomitant]
  8. OMEPRAZOLE [Concomitant]
  9. POTASSIUM CHLORIDE [Suspect]
  10. PROCHLORPERAZINE [Concomitant]
  11. ZOLADRONIC ACID [Concomitant]

REACTIONS (6)
  - Headache [None]
  - Haematoma [None]
  - Subarachnoid haemorrhage [None]
  - Hydrocephalus [None]
  - Metastases to central nervous system [None]
  - Metastases to meninges [None]
